FAERS Safety Report 10202013 (Version 2)
Quarter: 2014Q2

REPORT INFORMATION
  Report Type: Report from Study
  Country: JP (occurrence: JP)
  Receive Date: 20140528
  Receipt Date: 20140624
  Transmission Date: 20141212
  Serious: Yes (Hospitalization)
  Sender: FDA-Public Use
  Company Number: JP-ACTELION-A-CH2014-99497

PATIENT
  Age: 72 Year
  Sex: Female
  Weight: 49.2 kg

DRUGS (8)
  1. TRACLEER [Suspect]
     Indication: PULMONARY ARTERIAL HYPERTENSION
     Dosage: 62.5 MG, BID
     Route: 048
     Dates: start: 20110721, end: 20120106
  2. TRACLEER [Suspect]
     Dosage: 31.25 MG, BID
     Route: 048
     Dates: start: 20110719, end: 20110720
  3. EPOPROSTENOL SODIUM [Concomitant]
  4. SIMVASTATIN [Concomitant]
  5. DOCARPAMINE [Concomitant]
  6. PANTETHINE [Concomitant]
  7. MAGNESIUM OXIDE [Concomitant]
  8. OXYGEN [Concomitant]

REACTIONS (5)
  - Cardiac failure [Recovered/Resolved]
  - Liver disorder [Recovered/Resolved]
  - Alanine aminotransferase increased [Recovered/Resolved]
  - Aspartate aminotransferase increased [Recovered/Resolved]
  - Gamma-glutamyltransferase increased [Recovered/Resolved]
